FAERS Safety Report 4642266-9 (Version None)
Quarter: 2005Q2

REPORT INFORMATION
  Report Type: 
  Country: None (occurrence: None)
  Receive Date: 20050420
  Receipt Date: 20050407
  Transmission Date: 20051028
  Serious: Yes (Other)
  Sender: FDA-Public Use
  Company Number: 2005036301

PATIENT
  Age: 68 Year
  Sex: Female

DRUGS (12)
  1. DIFLUCAN [Suspect]
     Indication: FUNGAL INFECTION
     Dosage: 200 MG (200 MG), INTRAVENOUS
     Route: 042
     Dates: start: 20050220, end: 20050222
  2. LIPITOR [Suspect]
     Indication: BLOOD CHOLESTEROL INCREASED
     Dosage: 40 MG (40 MG, DAILY), ORAL
     Route: 048
     Dates: start: 20050213, end: 20050222
  3. ASPIRIN [Concomitant]
  4. CHLORHEXIDINE GLUCONATE [Concomitant]
  5. POTASSIUM CHLORIDE [Concomitant]
  6. MEROPENEM (MEROPENEM) [Concomitant]
  7. PSYLLIUM HYDROPHILIC MUCILLOID (PSYLLIUM HYDROPHILIC MUCILLOID) [Concomitant]
  8. RANITIDINE [Concomitant]
  9. LEVOTHYROXINE SODIUM [Concomitant]
  10. VANCOMYCIN [Concomitant]
  11. AMIODARONE HCL [Concomitant]
  12. FUROSEMIDE [Concomitant]

REACTIONS (3)
  - ALANINE AMINOTRANSFERASE INCREASED [None]
  - HAEMODIALYSIS [None]
  - RENAL FUNCTION TEST ABNORMAL [None]
